FAERS Safety Report 4470439-7 (Version None)
Quarter: 2004Q3

REPORT INFORMATION
  Report Type: 
  Country: None (occurrence: None)
  Receive Date: 20040909
  Receipt Date: 20040810
  Transmission Date: 20050211
  Serious: Yes (Hospitalization)
  Sender: FDA-Public Use
  Company Number: US-JNJFOC-20040803737

PATIENT
  Age: 65 Year
  Sex: Female

DRUGS (4)
  1. NATRECOR [Suspect]
     Indication: CARDIAC FAILURE CONGESTIVE
     Dosage: SEE IMAGE
     Route: 042
     Dates: start: 20040801, end: 20040801
  2. NATRECOR [Suspect]
     Indication: CARDIAC FAILURE CONGESTIVE
     Dosage: SEE IMAGE
     Route: 042
     Dates: start: 20040808, end: 20040808
  3. LASIX [Concomitant]
  4. DOBUTAMINE (DODUTAMINE) [Concomitant]

REACTIONS (3)
  - CONDITION AGGRAVATED [None]
  - HYPOTENSION [None]
  - RENAL FAILURE [None]
